FAERS Safety Report 4533812-4 (Version None)
Quarter: 2004Q4

REPORT INFORMATION
  Report Type: 
  Country: None (occurrence: None)
  Receive Date: 20041221
  Receipt Date: 20041012
  Transmission Date: 20050328
  Serious: Yes (Disabling)
  Sender: FDA-Public Use
  Company Number: PH-MERCK-0410PHL00002

PATIENT
  Age: 56 Year
  Sex: Male

DRUGS (6)
  1. VIOXX [Suspect]
     Indication: PAIN
     Route: 048
     Dates: start: 20000101
  2. PERINDOPRIL [Concomitant]
     Route: 048
     Dates: start: 20020101, end: 20020101
  3. PIRACETAM [Concomitant]
     Route: 048
     Dates: start: 20020101
  4. [THERAPY UNSPECIFIED] [Concomitant]
     Route: 065
     Dates: start: 20020101
  5. ASPIRIN [Concomitant]
     Route: 065
     Dates: start: 20020101
  6. [THERAPY UNSPECIFIED] [Concomitant]
     Route: 048

REACTIONS (4)
  - CEREBRAL HAEMORRHAGE [None]
  - CEREBROVASCULAR ACCIDENT [None]
  - FALL [None]
  - RADIUS FRACTURE [None]
